FAERS Safety Report 9499961 (Version 1)
Quarter: 2013Q3

REPORT INFORMATION
  Report Type: Spontaneous
  Country: US (occurrence: US)
  Receive Date: 20130905
  Receipt Date: 20130905
  Transmission Date: 20140515
  Serious: No
  Sender: FDA-Public Use
  Company Number: US-PFIZER INC-2013255298

PATIENT
  Age: 72 Year
  Sex: Female
  Weight: 81.6 kg

DRUGS (1)
  1. LYRICA [Suspect]
     Indication: HERPES ZOSTER
     Dosage: 100 MG, 2X/DAY
     Route: 048
     Dates: start: 20130831

REACTIONS (3)
  - Dizziness [Unknown]
  - Malaise [Unknown]
  - Intentional drug misuse [Unknown]
